FAERS Safety Report 13096118 (Version 1)
Quarter: 2017Q1

REPORT INFORMATION
  Report Type: Spontaneous
  Country: US (occurrence: US)
  Receive Date: 20170109
  Receipt Date: 20170109
  Transmission Date: 20170428
  Serious: No
  Sender: FDA-Public Use
  Company Number: US-GRANULES INDIA LIMITED-1061772

PATIENT
  Age: 57 Year
  Sex: Female
  Weight: 81.82 kg

DRUGS (2)
  1. NAPROXEN SODIUM. [Suspect]
     Active Substance: NAPROXEN SODIUM
     Indication: PAIN
  2. THYROID AND BLOOD PRESSURE MEDICATION [Concomitant]

REACTIONS (1)
  - Drug ineffective [Unknown]
